FAERS Safety Report 19286592 (Version 2)
Quarter: 2022Q1

REPORT INFORMATION
  Report Type: Spontaneous
  Country: CA (occurrence: None)
  Receive Date: 20210521
  Receipt Date: 20220128
  Transmission Date: 20220424
  Serious: Yes (Life-Threatening, Other)
  Sender: FDA-Public Use
  Company Number: 2021A451202

PATIENT
  Sex: Female

DRUGS (58)
  1. SEROQUEL [Suspect]
     Active Substance: QUETIAPINE FUMARATE
     Dosage: UNKNOWN
     Route: 048
  2. PULMICORT TURBUHALER [Suspect]
     Active Substance: BUDESONIDE
     Dosage: UNKNOWN
     Route: 055
  3. RHINOCORT [Suspect]
     Active Substance: BUDESONIDE
     Dosage: UNKNOWN
     Route: 045
  4. BRICANYL [Suspect]
     Active Substance: TERBUTALINE SULFATE
     Route: 065
  5. SYMBICORT [Suspect]
     Active Substance: BUDESONIDE\FORMOTEROL FUMARATE DIHYDRATE
     Route: 055
  6. CRESTOR [Suspect]
     Active Substance: ROSUVASTATIN CALCIUM
     Route: 048
  7. SEROQUEL XR [Suspect]
     Active Substance: QUETIAPINE FUMARATE
     Route: 048
  8. ADVIL [Concomitant]
     Active Substance: IBUPROFEN
  9. RABEPRAZOLE [Concomitant]
     Active Substance: RABEPRAZOLE
  10. PREGABALIN [Concomitant]
     Active Substance: PREGABALIN
  11. LIPITOR [Concomitant]
     Active Substance: ATORVASTATIN CALCIUM
  12. MEFENAMIC ACID [Concomitant]
     Active Substance: MEFENAMIC ACID
  13. LYRICA [Concomitant]
     Active Substance: PREGABALIN
  14. CELEBREX [Concomitant]
     Active Substance: CELECOXIB
  15. XANAX [Concomitant]
     Active Substance: ALPRAZOLAM
  16. PEGLYTE POWDER [Concomitant]
  17. METAMUCIL [Concomitant]
     Active Substance: PLANTAGO SEED
  18. GAVISCON [Concomitant]
     Active Substance: ALUMINUM HYDROXIDE\MAGNESIUM CARBONATE
  19. TYLENOL [Concomitant]
     Active Substance: ACETAMINOPHEN
  20. TYLENOL WITH CODEINE [Concomitant]
     Active Substance: ACETAMINOPHEN\CODEINE PHOSPHATE
  21. CLONAZEPAM [Concomitant]
     Active Substance: CLONAZEPAM
  22. ZYPREXA [Concomitant]
     Active Substance: OLANZAPINE
  23. ABILIFY [Concomitant]
     Active Substance: ARIPIPRAZOLE
  24. OXAZEPAM [Concomitant]
     Active Substance: OXAZEPAM
  25. VALPROIC ACID [Concomitant]
     Active Substance: VALPROIC ACID
  26. EPIVAL [Concomitant]
     Active Substance: DIVALPROEX SODIUM
  27. DEPAKOTE [Concomitant]
     Active Substance: DIVALPROEX SODIUM
  28. DIVALPROEX SODIUM [Concomitant]
     Active Substance: DIVALPROEX SODIUM
  29. RISPERIDONE [Concomitant]
     Active Substance: RISPERIDONE
  30. WELLBUTRIN XL [Concomitant]
     Active Substance: BUPROPION HYDROCHLORIDE
  31. WELLBUTRIN [Concomitant]
     Active Substance: BUPROPION HYDROCHLORIDE
  32. AMITRIPTYLINE [Concomitant]
     Active Substance: AMITRIPTYLINE
  33. TEVA-DICLOFENAC [Concomitant]
  34. CLOZARIL [Concomitant]
     Active Substance: CLOZAPINE
  35. ZELDOX [Concomitant]
     Active Substance: ZIPRASIDONE
  36. MORPHINE [Concomitant]
     Active Substance: MORPHINE
  37. PREVNAR 13 [Concomitant]
     Active Substance: PNEUMOCOCCAL 13-VALENT CONJUGATE VACCINE
  38. LIDOCAINE [Concomitant]
     Active Substance: LIDOCAINE
  39. DEPO-PROVERA [Concomitant]
     Active Substance: MEDROXYPROGESTERONE ACETATE
  40. VERAPAMIL [Concomitant]
     Active Substance: VERAPAMIL HYDROCHLORIDE
  41. FLAGYL [Concomitant]
     Active Substance: METRONIDAZOLE\METRONIDAZOLE HYDROCHLORIDE
  42. RELAPAX [Concomitant]
  43. ZOLOFT [Concomitant]
     Active Substance: SERTRALINE HYDROCHLORIDE
  44. LORAZEPAM [Concomitant]
     Active Substance: LORAZEPAM
  45. DIAZEPAM [Concomitant]
     Active Substance: DIAZEPAM
  46. EFFEXOR [Concomitant]
     Active Substance: VENLAFAXINE HYDROCHLORIDE
  47. ATIVAN [Concomitant]
     Active Substance: LORAZEPAM
  48. ASPIRIN [Concomitant]
     Active Substance: ASPIRIN
  49. ALEVE [Concomitant]
     Active Substance: NAPROXEN SODIUM
  50. MIRALAX [Concomitant]
     Active Substance: POLYETHYLENE GLYCOL 3350
  51. CLARITIN [Concomitant]
     Active Substance: LORATADINE
  52. METFORMIN [Concomitant]
     Active Substance: METFORMIN HYDROCHLORIDE
  53. OMNARIS [Concomitant]
     Active Substance: CICLESONIDE
  54. LEVOFLOXACIN [Concomitant]
     Active Substance: LEVOFLOXACIN
  55. FLUOXETINE HYDROCHLORIDE [Concomitant]
     Active Substance: FLUOXETINE HYDROCHLORIDE
  56. GABAPENTIN [Concomitant]
     Active Substance: GABAPENTIN
  57. ALLEGRA [Concomitant]
     Active Substance: FEXOFENADINE HYDROCHLORIDE
  58. DOMPERIDONE [Concomitant]
     Active Substance: DOMPERIDONE

REACTIONS (13)
  - Suicide attempt [Unknown]
  - Suicidal ideation [Unknown]
  - Abdominal discomfort [Unknown]
  - Depression [Unknown]
  - Gait disturbance [Unknown]
  - Injury [Unknown]
  - Insomnia [Unknown]
  - Micturition urgency [Unknown]
  - Nausea [Unknown]
  - Oropharyngeal pain [Unknown]
  - Vomiting [Unknown]
  - Dry mouth [Unknown]
  - Dizziness [Unknown]
